FAERS Safety Report 5915077-1 (Version None)
Quarter: 2008Q4

REPORT INFORMATION
  Report Type: 
  Country: None (occurrence: None)
  Receive Date: 20081010
  Receipt Date: 20081003
  Transmission Date: 20090506
  Serious: Yes (Hospitalization)
  Sender: FDA-Public Use
  Company Number: A0751230A

PATIENT
  Age: 42 Year
  Sex: Female
  Weight: 105.9 kg

DRUGS (1)
  1. AVANDIA [Suspect]
     Dosage: 8MG PER DAY
     Route: 065
     Dates: start: 20011101, end: 20040101

REACTIONS (6)
  - ANEURYSM [None]
  - CARDIAC DISORDER [None]
  - CARDIAC VALVE DISEASE [None]
  - CARDIOMEGALY [None]
  - DYSPNOEA [None]
  - OEDEMA [None]
